FAERS Safety Report 23290291 (Version 1)
Quarter: 2023Q4

REPORT INFORMATION
  Report Type: Report from Study
  Country: FR (occurrence: FR)
  Receive Date: 20231213
  Receipt Date: 20231213
  Transmission Date: 20240110
  Serious: Yes (Hospitalization, Other)
  Sender: FDA-Public Use
  Company Number: FR-TEVA-2022-FR-2057127

PATIENT

DRUGS (2)
  1. DICLOFENAC [Interacting]
     Active Substance: DICLOFENAC
     Indication: Product used for unknown indication
     Dosage: UNKNOWN
     Route: 065
  2. FLUINDIONE [Interacting]
     Active Substance: FLUINDIONE
     Indication: Product used for unknown indication
     Dosage: UNKNOWN
     Route: 065

REACTIONS (2)
  - Drug interaction [Unknown]
  - Haemorrhage [Unknown]
